FAERS Safety Report 4932238-9 (Version None)
Quarter: 2006Q1

REPORT INFORMATION
  Report Type: 
  Country: None (occurrence: None)
  Receive Date: 20060228
  Receipt Date: 20060214
  Transmission Date: 20060701
  Serious: Yes (Hospitalization)
  Sender: FDA-Public Use
  Company Number: 222158

PATIENT
  Age: 67 Year
  Sex: Female

DRUGS (5)
  1. MABTHERA (RITUXIMAB) CONC FOR SOLUTION FOR INFUSION [Suspect]
     Indication: MANTLE CELL LYMPHOMA
  2. CYCLOPHOSPHAMIDE [Concomitant]
  3. DOXORUBICIN HCL [Concomitant]
  4. VINCRISTINE [Concomitant]
  5. PREDNISONE TAB [Concomitant]

REACTIONS (2)
  - MENTAL DISORDER [None]
  - PROGRESSIVE MULTIFOCAL LEUKOENCEPHALOPATHY [None]
